FAERS Safety Report 9921584 (Version 4)
Quarter: 2014Q2

REPORT INFORMATION
  Report Type: Report from Study
  Country: US (occurrence: US)
  Receive Date: 20140225
  Receipt Date: 20140523
  Transmission Date: 20141212
  Serious: Yes (Death, Other)
  Sender: FDA-Public Use
  Company Number: PHEH2014US001653

PATIENT
  Sex: Male

DRUGS (1)
  1. GLEEVEC [Suspect]
     Indication: SOFT TISSUE SARCOMA
     Dosage: 400 MG, QD
     Route: 048

REACTIONS (4)
  - Death [Fatal]
  - Soft tissue sarcoma [Unknown]
  - Malignant neoplasm progression [Unknown]
  - No therapeutic response [Unknown]
